FAERS Safety Report 8347254-7 (Version None)
Quarter: 2012Q1

REPORT INFORMATION
  Report Type: 
  Country: None (occurrence: None)
  Receive Date: 20120315
  Receipt Date: 20110113
  Transmission Date: 20120608
  Serious: No
  Sender: FDA-Public Use
  Company Number: PHHY2011US00667

PATIENT
  Age: 47 Year
  Sex: Female

DRUGS (4)
  1. PROZAC [Concomitant]
  2. COPAXONE [Concomitant]
  3. BACLOFEN [Concomitant]
  4. GILENYA [Suspect]
     Indication: MULTIPLE SCLEROSIS
     Dosage: 0.5 MG, QD, ORAL
     Route: 048
     Dates: start: 20101222

REACTIONS (3)
  - PALPITATIONS [None]
  - HEART RATE INCREASED [None]
  - ANXIETY [None]
